FAERS Safety Report 9319265 (Version 1)
Quarter: 2013Q2

REPORT INFORMATION
  Report Type: Report from Study
  Country: AR (occurrence: AR)
  Receive Date: 20130530
  Receipt Date: 20130530
  Transmission Date: 20140414
  Serious: Yes (Hospitalization)
  Sender: FDA-Public Use
  Company Number: PHHY2013AR053780

PATIENT
  Sex: Female

DRUGS (3)
  1. ONBREZ [Suspect]
     Indication: CHRONIC OBSTRUCTIVE PULMONARY DISEASE
     Dosage: 300 UG, UNK
     Dates: start: 201302
  2. ONBREZ [Suspect]
     Indication: PULMONARY FIBROSIS
  3. ONBREZ [Suspect]
     Indication: OFF LABEL USE

REACTIONS (1)
  - Cerebrovascular accident [Not Recovered/Not Resolved]
